FAERS Safety Report 8471620-2 (Version None)
Quarter: 2012Q2

REPORT INFORMATION
  Report Type: 
  Country: None (occurrence: None)
  Receive Date: 20120621
  Receipt Date: 20120611
  Transmission Date: 20120825
  Serious: Yes (Other)
  Sender: FDA-Public Use
  Company Number: 2012POI057500118

PATIENT
  Age: 83 Year
  Sex: Female

DRUGS (1)
  1. DARVOCET-N 100 [Suspect]

REACTIONS (1)
  - ULCER [None]
